FAERS Safety Report 9698857 (Version 2)
Quarter: 2014Q1

REPORT INFORMATION
  Report Type: Spontaneous
  Country: US (occurrence: US)
  Receive Date: 20131120
  Receipt Date: 20140110
  Transmission Date: 20141002
  Serious: Yes (Other)
  Sender: FDA-Public Use
  Company Number: US-ROXANE LABORATORIES, INC.-2013-RO-01846RO

PATIENT
  Age: 51 Year
  Sex: Female
  Weight: 96 kg

DRUGS (5)
  1. PREDNISONE [Suspect]
     Indication: MULTIPLE SCLEROSIS RELAPSE
     Dates: start: 20131018, end: 20131030
  2. COPAXONE [Suspect]
     Indication: MULTIPLE SCLEROSIS
     Dates: start: 20120503
  3. SOLU-MEDROL [Suspect]
     Indication: MULTIPLE SCLEROSIS RELAPSE
     Route: 042
  4. LISINOPRIL [Concomitant]
     Indication: HYPERTENSION
     Dosage: 20 MG
  5. INSULIN [Concomitant]
     Indication: DIABETES MELLITUS
     Dates: start: 20130712

REACTIONS (1)
  - Blood glucose increased [Unknown]
